FAERS Safety Report 15542154 (Version 1)
Quarter: 2018Q4

REPORT INFORMATION
  Report Type: Spontaneous
  Country: ZA (occurrence: ZA)
  Receive Date: 20181023
  Receipt Date: 20181023
  Transmission Date: 20190205
  Serious: Yes (Other)
  Sender: FDA-Public Use
  Company Number: ZA-ASTRAZENECA-2018SF36113

PATIENT
  Sex: Female

DRUGS (11)
  1. TRUSTAN [Concomitant]
     Active Substance: ESOMEPRAZOLE
  2. PURICOS [Concomitant]
     Active Substance: ALLOPURINOL
  3. TRUSTAN [Suspect]
     Active Substance: ESOMEPRAZOLE
     Indication: DYSPEPSIA
     Route: 048
     Dates: start: 201805
  4. SLOW-K [Concomitant]
     Active Substance: POTASSIUM CHLORIDE
  5. CO-TAREG [Concomitant]
     Active Substance: HYDROCHLOROTHIAZIDE\VALSARTAN
  6. ADCO-RETIC [Concomitant]
     Active Substance: AMILORIDE HYDROCHLORIDE\HYDROCHLOROTHIAZIDE
  7. COLITE [Concomitant]
  8. EUTHYROX [Concomitant]
     Active Substance: LEVOTHYROXINE SODIUM
  9. PRADAXA [Concomitant]
     Active Substance: DABIGATRAN ETEXILATE MESYLATE
  10. BILOCOR [Concomitant]
     Active Substance: BISOPROLOL FUMARATE
  11. CITRAZ [Concomitant]
     Active Substance: ESCITALOPRAM OXALATE

REACTIONS (2)
  - Gastric ulcer [Recovering/Resolving]
  - Pulmonary thrombosis [Recovering/Resolving]
